FAERS Safety Report 7675743-7 (Version None)
Quarter: 2011Q3

REPORT INFORMATION
  Report Type: 
  Country: None (occurrence: None)
  Receive Date: 20110810
  Receipt Date: 20110803
  Transmission Date: 20111222
  Serious: No
  Sender: FDA-Public Use
  Company Number: US-TYCO HEALTHCARE/MALLINCKRODT-T201101538

PATIENT
  Sex: Female

DRUGS (1)
  1. PENNSAID [Suspect]

REACTIONS (3)
  - ERYTHEMA [None]
  - PHARYNGEAL OEDEMA [None]
  - DYSPNOEA [None]
